FAERS Safety Report 11093502 (Version 1)
Quarter: 2015Q2

REPORT INFORMATION
  Report Type: Spontaneous
  Country: US (occurrence: None)
  Receive Date: 20150428
  Receipt Date: 20150428
  Transmission Date: 20150821
  Serious: Yes (Hospitalization, Disabling, Other)
  Sender: FDA-Public Use
  Company Number: PHEH2014US025932

PATIENT
  Age: 55 Year
  Sex: Female
  Weight: 96 kg

DRUGS (5)
  1. GILENYA [Suspect]
     Active Substance: FINGOLIMOD HYDROCHLORIDE
     Indication: RELAPSING-REMITTING MULTIPLE SCLEROSIS
     Route: 048
     Dates: start: 20120126, end: 20141215
  2. DITROPAN XL (OXYBUTYNIN HYDROCHLORIDE) [Concomitant]
  3. COUMADIN [Concomitant]
     Active Substance: WARFARIN SODIUM
  4. FLOMAX [Concomitant]
     Active Substance: TAMSULOSIN HYDROCHLORIDE
  5. PROVIGIL [Concomitant]
     Active Substance: MODAFINIL

REACTIONS (4)
  - Immunosuppression [None]
  - White blood cell count increased [None]
  - C-reactive protein increased [None]
  - Septic arthritis streptococcal [None]

NARRATIVE: CASE EVENT DATE: 20141215
